FAERS Safety Report 14815375 (Version 1)
Quarter: 2018Q2

REPORT INFORMATION
  Report Type: Report from Study
  Country: BR (occurrence: BR)
  Receive Date: 20180426
  Receipt Date: 20180426
  Transmission Date: 20180711
  Serious: Yes (Other)
  Sender: FDA-Public Use
  Company Number: BR-MYLANLABS-2018M1026079

PATIENT

DRUGS (2)
  1. TRIAMCINOLONE [Suspect]
     Active Substance: TRIAMCINOLONE
     Indication: CORNEAL GRAFT REJECTION
     Dosage: 20MG
     Route: 057
  2. PREDNISOLONE. [Suspect]
     Active Substance: PREDNISOLONE
     Indication: CORNEAL GRAFT REJECTION
     Dosage: ONCE EVERY HOUR FOR 1 WEEK, WITH SUBSEQUENT TAPERING OF FREQUENCY
     Route: 061

REACTIONS (1)
  - Glaucoma [Unknown]
